APPROVED DRUG PRODUCT: NAPROXEN SODIUM
Active Ingredient: NAPROXEN SODIUM
Strength: EQ 250MG BASE
Dosage Form/Route: TABLET;ORAL
Application: A078432 | Product #001
Applicant: AMNEAL PHARMACEUTICALS NY LLC
Approved: Apr 25, 2007 | RLD: No | RS: No | Type: DISCN